FAERS Safety Report 16169943 (Version 1)
Quarter: 2019Q2

REPORT INFORMATION
  Report Type: Spontaneous
  Country: FR (occurrence: DE)
  Receive Date: 20190408
  Receipt Date: 20190408
  Transmission Date: 20190711
  Serious: Yes (Hospitalization, Other)
  Sender: FDA-Public Use
  Company Number: FR-MYLANLABS-07P-062-0371406-00

PATIENT
  Age: 53 Year
  Sex: Female

DRUGS (12)
  1. DIAZEPAM. [Concomitant]
     Active Substance: DIAZEPAM
     Indication: PRODUCT USED FOR UNKNOWN INDICATION
     Dosage: 10 MILLIGRAM
     Route: 065
  2. LAMOTRIGINE. [Suspect]
     Active Substance: LAMOTRIGINE
     Indication: PARTIAL SEIZURES
     Dosage: 100 MILLIGRAM, UNK (100.000 (E2B UNIT: 003))
     Route: 065
  3. LEVETIRACETAM. [Suspect]
     Active Substance: LEVETIRACETAM
     Indication: PARTIAL SEIZURES
     Dosage: 2500 MILLIGRAM, UNK (2500.000 (E2B UNIT: 003))
     Route: 065
  4. HALOPERIDOL. [Concomitant]
     Active Substance: HALOPERIDOL
     Dosage: 10 MILLIGRAM
     Route: 065
  5. LAMOTRIGINE. [Interacting]
     Active Substance: LAMOTRIGINE
     Dosage: 250 MILLIGRAM, QD (INCREASED TO 250 MG DAILY)
     Route: 048
  6. VALPROIC ACID. [Interacting]
     Active Substance: VALPROIC ACID
     Indication: PARTIAL SEIZURES
     Dosage: 900 MILLIGRAM, QD
     Route: 065
  7. LAMOTRIGINE. [Interacting]
     Active Substance: LAMOTRIGINE
     Dosage: DAILY DOSE: 2500.000 (E2B UNIT: 003)
     Route: 065
  8. CARBAMAZEPINE. [Concomitant]
     Active Substance: CARBAMAZEPINE
     Indication: EPILEPSY
  9. CLONAZEPAM. [Concomitant]
     Active Substance: CLONAZEPAM
  10. HALOPERIDOL. [Concomitant]
     Active Substance: HALOPERIDOL
     Indication: PRODUCT USED FOR UNKNOWN INDICATION
     Dosage: 4 MILLIGRAM, UNK
  11. CLORAZEPATE [Concomitant]
     Active Substance: CLORAZEPATE DIPOTASSIUM
     Dosage: 30MILLIGRAM
  12. TOPIRAMATE. [Suspect]
     Active Substance: TOPIRAMATE
     Indication: PARTIAL SEIZURES
     Dosage: UNK
     Route: 065

REACTIONS (9)
  - Delusion [Recovered/Resolved]
  - Drug level increased [Recovered/Resolved]
  - Thinking abnormal [Recovered/Resolved]
  - Sleep disorder [Recovered/Resolved]
  - Illogical thinking [Recovered/Resolved]
  - Psychotic disorder [Recovered/Resolved]
  - Drug interaction [Recovered/Resolved]
  - Anticonvulsant drug level above therapeutic [Unknown]
  - Substance-induced psychotic disorder [Recovered/Resolved]
